FAERS Safety Report 4888571-2 (Version None)
Quarter: 2005Q4

REPORT INFORMATION
  Report Type: 
  Country: None (occurrence: None)
  Receive Date: 20051215
  Receipt Date: 20050509
  Transmission Date: 20060501
  Serious: Yes (Other)
  Sender: FDA-Public Use
  Company Number: 2005024054

PATIENT
  Sex: Female

DRUGS (1)
  1. BEXTRA [Suspect]
     Indication: ILL-DEFINED DISORDER
     Dosage: 20 MG(20 MG,1 IN  1 D),ORAL
     Route: 048
     Dates: start: 20040719, end: 20041011

REACTIONS (1)
  - ATRIAL FIBRILLATION [None]
